FAERS Safety Report 6327883-2 (Version None)
Quarter: 2009Q3

REPORT INFORMATION
  Report Type: 
  Country: None (occurrence: None)
  Receive Date: 20090824
  Receipt Date: 20090812
  Transmission Date: 20100115
  Serious: Yes (Hospitalization)
  Sender: FDA-Public Use
  Company Number: PAR_02384_2008

PATIENT
  Sex: Female
  Weight: 40 kg

DRUGS (1)
  1. LIALDA [Suspect]
     Indication: COLITIS ULCERATIVE
     Dosage: (2 DF QD ORAL)
     Route: 048
     Dates: start: 20080905, end: 20081014

REACTIONS (2)
  - ANXIETY [None]
  - URETHRAL MEATUS STENOSIS [None]
